FAERS Safety Report 26095215 (Version 1)
Quarter: 2025Q4

REPORT INFORMATION
  Report Type: Report from Study
  Country: MX (occurrence: MX)
  Receive Date: 20251127
  Receipt Date: 20251127
  Transmission Date: 20260117
  Serious: Yes (Other)
  Sender: ABBVIE
  Company Number: MX-ABBVIE-6563339

PATIENT
  Age: 58 Year
  Sex: Female
  Weight: 75 kg

DRUGS (3)
  1. VENCLEXTA [Suspect]
     Active Substance: VENETOCLAX
     Indication: Chronic lymphocytic leukaemia
     Dosage: VENCLEXTA 100 MG X 120
     Route: 048
     Dates: start: 20241215, end: 202509
  2. ACETAMINOPHEN\TRAMADOL [Concomitant]
     Active Substance: ACETAMINOPHEN\TRAMADOL
     Indication: Arthralgia
     Dosage: 37.5 MG/ 325 MG ONE TABLET EVERY 12 HOURS.
     Route: 048
  3. Diosmina hesperidina [Concomitant]
     Indication: Peripheral venous disease
     Dosage: TWO TABLETS EVERY 24 HOURS IN THE MORNINGS.

REACTIONS (6)
  - Hip arthroplasty [Unknown]
  - Feeling hot [Not Recovered/Not Resolved]
  - Device related infection [Recovering/Resolving]
  - Night sweats [Not Recovered/Not Resolved]
  - Breast discomfort [Not Recovered/Not Resolved]
  - Incision site impaired healing [Unknown]

NARRATIVE: CASE EVENT DATE: 20250101
